FAERS Safety Report 19659233 (Version 1)
Quarter: 2021Q3

REPORT INFORMATION
  Report Type: Spontaneous
  Country: US (occurrence: US)
  Receive Date: 20210805
  Receipt Date: 20210805
  Transmission Date: 20211014
  Serious: No
  Sender: FDA-Public Use
  Company Number: US-ELI_LILLY_AND_COMPANY-US202108002001

PATIENT
  Sex: Female
  Weight: 53.52 kg

DRUGS (11)
  1. MAGNESIUM [Concomitant]
     Active Substance: MAGNESIUM
     Indication: MIGRAINE
  2. VITAMIN D NOS [Concomitant]
     Active Substance: VITAMIN D NOS
     Indication: MIGRAINE
  3. EMGALITY [Suspect]
     Active Substance: GALCANEZUMAB-GNLM
     Indication: MIGRAINE
     Dosage: 120 MG, UNKNOWN
     Route: 065
     Dates: start: 202102
  4. BIOTIN [Concomitant]
     Active Substance: BIOTIN
     Indication: MIGRAINE
  5. CALCIUM [Concomitant]
     Active Substance: CALCIUM
     Indication: MIGRAINE
  6. TOPAMAX [Concomitant]
     Active Substance: TOPIRAMATE
     Indication: MIGRAINE
  7. UBRELVY [Concomitant]
     Active Substance: UBROGEPANT
     Indication: MIGRAINE
  8. MELATONIN [Concomitant]
     Active Substance: MELATONIN
     Indication: MIGRAINE
  9. NAMENDA [Concomitant]
     Active Substance: MEMANTINE HYDROCHLORIDE
     Indication: MIGRAINE
  10. B2 ASMEDIC [Concomitant]
     Indication: MIGRAINE
  11. BOTOX [Concomitant]
     Active Substance: ONABOTULINUMTOXINA
     Indication: MIGRAINE

REACTIONS (4)
  - Injection site reaction [Unknown]
  - Injection site swelling [Unknown]
  - Vertigo [Unknown]
  - Injection site pain [Unknown]
